APPROVED DRUG PRODUCT: ZOMIG
Active Ingredient: ZOLMITRIPTAN
Strength: 2.5MG/SPRAY
Dosage Form/Route: SPRAY;NASAL
Application: N021450 | Product #003 | TE Code: AB
Applicant: AMNEAL PHARMACEUTICALS LLC
Approved: Sep 16, 2013 | RLD: Yes | RS: Yes | Type: RX